FAERS Safety Report 6701603-1 (Version None)
Quarter: 2010Q2

REPORT INFORMATION
  Report Type: 
  Country: None (occurrence: None)
  Receive Date: 20100429
  Receipt Date: 20100426
  Transmission Date: 20101027
  Serious: Yes (Hospitalization)
  Sender: FDA-Public Use
  Company Number: US-ELI_LILLY_AND_COMPANY-US201003004573

PATIENT
  Sex: Female

DRUGS (3)
  1. HUMALOG MIX 75/25 [Suspect]
     Indication: DIABETES MELLITUS
     Dosage: 15 U, 2/D
     Dates: start: 20070601, end: 20100201
  2. HUMALOG MIX 75/25 [Suspect]
     Dosage: 8 U, EACH MORNING
     Dates: start: 20070601, end: 20100201
  3. LEVEMIR [Concomitant]

REACTIONS (10)
  - DIARRHOEA [None]
  - FALL [None]
  - HYPERTENSION [None]
  - HYPOGLYCAEMIA [None]
  - NEUROGLYCOPENIA [None]
  - NEUROPATHY PERIPHERAL [None]
  - PERIPHERAL VASCULAR DISORDER [None]
  - PNEUMONITIS [None]
  - SCIATICA [None]
  - TINEA PEDIS [None]
